FAERS Safety Report 25895509 (Version 2)
Quarter: 2025Q4

REPORT INFORMATION
  Report Type: Spontaneous
  Country: JP (occurrence: JP)
  Receive Date: 20251008
  Receipt Date: 20251211
  Transmission Date: 20260118
  Serious: Yes (Disabling, Other)
  Sender: MERCK SHARP & DOHME LLC
  Company Number: JP-009507513-2335587

PATIENT
  Age: 66 Year
  Sex: Male

DRUGS (1)
  1. WELIREG [Suspect]
     Active Substance: BELZUTIFAN
     Indication: Renal cell carcinoma
     Route: 048
     Dates: start: 20250917, end: 20250918

REACTIONS (3)
  - Disease progression [Not Recovered/Not Resolved]
  - Altered state of consciousness [Unknown]
  - Dysphagia [Unknown]

NARRATIVE: CASE EVENT DATE: 20250901
